FAERS Safety Report 13687504 (Version 1)
Quarter: 2017Q2

REPORT INFORMATION
  Report Type: Spontaneous
  Country: GB (occurrence: GB)
  Receive Date: 20170624
  Receipt Date: 20170624
  Transmission Date: 20170830
  Serious: Yes (Hospitalization, Other)
  Sender: FDA-Public Use
  Company Number: GB-TORRENT-00015360

PATIENT
  Age: 57 Year
  Sex: Female

DRUGS (6)
  1. QUETIAPINE. [Suspect]
     Active Substance: QUETIAPINE
  2. VALPROATE [Concomitant]
     Active Substance: VALPROIC ACID
  3. DEPIXOL NOS [Suspect]
     Active Substance: FLUPENTIXOL
  4. ATORVASTATIN [Concomitant]
     Active Substance: ATORVASTATIN
  5. ARIPIPRAZOLE. [Suspect]
     Active Substance: ARIPIPRAZOLE
  6. OLANZAPINE. [Suspect]
     Active Substance: OLANZAPINE

REACTIONS (2)
  - Transient ischaemic attack [Recovered/Resolved]
  - Treatment noncompliance [Unknown]
